FAERS Safety Report 20062731 (Version 2)
Quarter: 2021Q4

REPORT INFORMATION
  Report Type: Report from Study
  Country: FR (occurrence: FR)
  Receive Date: 20211112
  Receipt Date: 20211129
  Transmission Date: 20220303
  Serious: Yes (Hospitalization)
  Sender: FDA-Public Use
  Company Number: FR-BAYER-2021A246497

PATIENT
  Age: 76 Year
  Sex: Female
  Weight: 38 kg

DRUGS (38)
  1. REGORAFENIB [Suspect]
     Active Substance: REGORAFENIB
     Indication: Adenocarcinoma of colon
     Dosage: 80 MG (LAST DAILY DOSE BEFORE SAE)
     Route: 048
     Dates: start: 20201107, end: 20210531
  2. OXALIPLATIN [Suspect]
     Active Substance: OXALIPLATIN
     Indication: Adenocarcinoma of colon
     Dosage: 90 MG (LAST DAILY DOSE BEFORE SAE)
     Route: 042
     Dates: start: 20201104, end: 20210427
  3. IRINOTECAN [Suspect]
     Active Substance: IRINOTECAN
     Indication: Adenocarcinoma of colon
     Dosage: 120 MG (LAST DAILY DOSE BEFORE SAE)
     Route: 042
     Dates: start: 20201104, end: 20210427
  4. LEVOLEUCOVORIN CALCIUM [Suspect]
     Active Substance: LEVOLEUCOVORIN CALCIUM
     Indication: Adenocarcinoma of colon
     Dosage: 270 MG (LAST DAILY DOSE BEFORE SAE)
     Route: 042
     Dates: start: 20201104, end: 20210427
  5. FLUOROURACIL [Suspect]
     Active Substance: FLUOROURACIL
     Indication: Adenocarcinoma of colon
     Dosage: 550 MG (LAST DAILY DOSE BEFORE SAE)
     Route: 042
     Dates: start: 20201104, end: 20201118
  6. PREDNISOLONE [Concomitant]
     Active Substance: PREDNISOLONE
     Indication: Prophylactic chemotherapy
     Dosage: 2 DF, OM (AT EACH CHEMOTHERAPY SESSION)
     Dates: start: 20201104
  7. EMEND [Concomitant]
     Active Substance: APREPITANT
     Indication: Prophylactic chemotherapy
     Dosage: 1 DF, OM (AT EACH CHEMOTHERAPY SESSION)
     Dates: start: 20201104
  8. FORLAX [MACROGOL 3350;POTASSIUM CHLORIDE;SODIUM BICARBONATE;SODIUM [Concomitant]
     Indication: Prophylactic chemotherapy
     Dosage: 2 DF, OM (AT EACH CHEMOTHERAPY SESSION)
     Dates: start: 20201104
  9. ONDANSETRON [Concomitant]
     Active Substance: ONDANSETRON
     Indication: Prophylactic chemotherapy
     Dosage: 1/DAY (AT EACH CHEMOTHERAPY SESSION)
     Dates: start: 20201104
  10. EMLA [Concomitant]
     Active Substance: LIDOCAINE\PRILOCAINE
     Indication: Prophylactic chemotherapy
     Dosage: 1 DF (AT EACH CHEMOTHERAPY SESSION)
     Dates: start: 20201104
  11. XANAX [Concomitant]
     Active Substance: ALPRAZOLAM
     Indication: Psychiatric disorder prophylaxis
     Dosage: 1 DF, OM (AT EACH CHEMOTHERAPY SESSION)
     Dates: start: 20201104
  12. SODIUM BICARBONATE [Concomitant]
     Active Substance: SODIUM BICARBONATE
     Indication: Mucosal inflammation
     Dosage: 6 MOUTH WASHES/DAY
     Dates: start: 20201104
  13. SODIUM BICARBONATE [Concomitant]
     Active Substance: SODIUM BICARBONATE
     Indication: Oral candidiasis
  14. SMECTA [Concomitant]
     Active Substance: MONTMORILLONITE
     Indication: Diarrhoea
     Dosage: 3/DAY
     Dates: start: 20201104
  15. TRAMADOL HYDROCHLORIDE [Concomitant]
     Active Substance: TRAMADOL HYDROCHLORIDE
     Indication: Pain
     Dosage: 100 MG, QD
     Dates: start: 20201112, end: 202012
  16. MORPHINE SULFATE [Concomitant]
     Active Substance: MORPHINE SULFATE
     Indication: Pain
     Dosage: UNK
     Dates: start: 202011
  17. NITROGLYCERIN [Concomitant]
     Active Substance: NITROGLYCERIN
     Dosage: UNK
  18. HALDOL [Concomitant]
     Active Substance: HALOPERIDOL
     Indication: Anxiety
     Dosage: 5 DROP
     Dates: start: 202012
  19. FUNGIZONE [Concomitant]
     Active Substance: AMPHOTERICIN B
     Indication: Mucosal inflammation
     Dosage: UNK
     Dates: start: 202012
  20. FUNGIZONE [Concomitant]
     Active Substance: AMPHOTERICIN B
     Indication: Oral candidiasis
  21. LINEZOLID [Concomitant]
     Active Substance: LINEZOLID
     Indication: Infection
     Dosage: 1 DF, BID
     Dates: start: 20201125, end: 20201207
  22. POLYETHYLENE GLYCOL 3350 [Concomitant]
     Active Substance: POLYETHYLENE GLYCOL 3350
     Indication: Constipation
     Dosage: 1 DF, OM
     Dates: start: 20201209
  23. PREDNISOLONE [Concomitant]
     Active Substance: PREDNISOLONE
     Indication: Mucosal inflammation
     Dosage: 1 DF FOR 5 DAYS
     Dates: start: 20201201
  24. PREDNISOLONE [Concomitant]
     Active Substance: PREDNISOLONE
     Indication: Oral candidiasis
     Dosage: 0.5 DF FOR 5 DAYS
     Dates: start: 20201201
  25. PREDNISOLONE [Concomitant]
     Active Substance: PREDNISOLONE
     Indication: Mucosal inflammation
     Dosage: UNK
     Dates: end: 20201218
  26. VALACYCLOVIR HYDROCHLORIDE [Concomitant]
     Active Substance: VALACYCLOVIR HYDROCHLORIDE
     Indication: Mucosal inflammation
     Dosage: 1000 MG, BID
     Dates: start: 20201202
  27. VALACYCLOVIR HYDROCHLORIDE [Concomitant]
     Active Substance: VALACYCLOVIR HYDROCHLORIDE
     Indication: Oral candidiasis
  28. ARTISIAL [Concomitant]
     Active Substance: CALCIUM CHLORIDE\MAGNESIUM CHLORIDE\POTASSIUM CHLORIDE\POTASSIUM PHOSPHATE, DIBASIC\POTASSIUM PHOSPH
     Indication: Mucosal inflammation
     Dosage: 1 SPRAY 6 TIMES PER DAY
     Dates: start: 202012
  29. ARTISIAL [Concomitant]
     Active Substance: CALCIUM CHLORIDE\MAGNESIUM CHLORIDE\POTASSIUM CHLORIDE\POTASSIUM PHOSPHATE, DIBASIC\POTASSIUM PHOSPH
     Indication: Oral candidiasis
  30. LIDOCAINE [Concomitant]
     Active Substance: LIDOCAINE
     Indication: Mucosal inflammation
     Dosage: 1 DF, Q4HR
     Dates: start: 20201201
  31. LIDOCAINE [Concomitant]
     Active Substance: LIDOCAINE
     Indication: Oral candidiasis
  32. DOLIPRANE [Concomitant]
     Active Substance: ACETAMINOPHEN
     Indication: Pain prophylaxis
     Dosage: 1 G
     Dates: start: 20201209
  33. FILGRASTIM [Concomitant]
     Active Substance: FILGRASTIM
     Indication: Neutropenia
     Dosage: UNK
     Dates: start: 20201113, end: 20201127
  34. FLUCONAZOLE [Concomitant]
     Active Substance: FLUCONAZOLE
     Indication: Oropharyngeal pain
     Dosage: UNK
     Dates: start: 20201201, end: 20201202
  35. NITROGLYCERIN [Concomitant]
     Active Substance: NITROGLYCERIN
     Indication: Chemotherapy side effect prophylaxis
     Dosage: UNK
     Dates: start: 20201222
  36. ALPRAZOLAM [Concomitant]
     Active Substance: ALPRAZOLAM
     Indication: Anxiety
     Dosage: 0.25 MG, QD
     Dates: start: 20201127
  37. MORPHINE [Concomitant]
     Active Substance: MORPHINE
     Indication: Pain
     Dosage: 10 MG
     Dates: start: 20201210
  38. ANETHOLTRITHION [Concomitant]
     Active Substance: ANETHOLTRITHION
     Indication: Dry mouth
     Dosage: 25 MG, TID
     Dates: start: 20210511

REACTIONS (2)
  - Atrial fibrillation [Recovered/Resolved]
  - Pyelonephritis [Recovered/Resolved]

NARRATIVE: CASE EVENT DATE: 20210604
